FAERS Safety Report 6425539-9 (Version None)
Quarter: 2009Q4

REPORT INFORMATION
  Report Type: 
  Country: None (occurrence: None)
  Receive Date: 20091103
  Receipt Date: 20091102
  Transmission Date: 20100525
  Serious: Yes (Other)
  Sender: FDA-Public Use
  Company Number: US-JNJFOC-20061202072

PATIENT
  Sex: Male

DRUGS (7)
  1. RISPERDAL [Suspect]
     Indication: SCHIZOPHRENIA
     Route: 065
  2. RISPERDAL CONSTA [Suspect]
     Indication: SCHIZOPHRENIA
     Route: 030
  3. RISPERIDONE [Suspect]
     Indication: DRUG USE FOR UNKNOWN INDICATION
     Route: 048
  4. SEROQUEL [Suspect]
     Indication: SLEEP DISORDER
     Route: 065
  5. ZYPREXA [Suspect]
     Indication: SCHIZOPHRENIA
     Route: 065
  6. ARIPIPRAZOLE [Suspect]
     Indication: DRUG USE FOR UNKNOWN INDICATION
  7. HALOPERIDOL [Concomitant]
     Indication: DRUG USE FOR UNKNOWN INDICATION

REACTIONS (11)
  - ANORGASMIA [None]
  - BREAST TENDERNESS [None]
  - DIABETES MELLITUS [None]
  - GYNAECOMASTIA [None]
  - HEPATIC STEATOSIS [None]
  - METABOLIC SYNDROME [None]
  - MUSCULOSKELETAL STIFFNESS [None]
  - PENIS DISORDER [None]
  - PSYCHOTIC DISORDER [None]
  - RASH [None]
  - WEIGHT INCREASED [None]
